FAERS Safety Report 8357273-2 (Version None)
Quarter: 2012Q2

REPORT INFORMATION
  Report Type: 
  Country: None (occurrence: None)
  Receive Date: 20120514
  Receipt Date: 20120503
  Transmission Date: 20120825
  Serious: Yes (Other)
  Sender: FDA-Public Use
  Company Number: FR-ROCHE-1064538

PATIENT
  Age: 73 Year
  Sex: Male
  Weight: 57 kg

DRUGS (1)
  1. ACTEMRA [Suspect]
     Indication: RHEUMATOID ARTHRITIS
     Dates: start: 20120412

REACTIONS (2)
  - INFECTION [None]
  - LUNG DISORDER [None]
